FAERS Safety Report 26070062 (Version 1)
Quarter: 2025Q4

REPORT INFORMATION
  Report Type: Spontaneous
  Country: US (occurrence: US)
  Receive Date: 20251120
  Receipt Date: 20251120
  Transmission Date: 20260118
  Serious: Yes (Life-Threatening)
  Sender: RECORDATI
  Company Number: US-RECORDATI RARE DISEASES-2025008100

PATIENT
  Age: 37 Year
  Sex: Female

DRUGS (2)
  1. HEMIN [Suspect]
     Active Substance: HEMIN
     Indication: Porphyria acute
     Dosage: UNK
     Dates: end: 2025
  2. GIVOSIRAN [Concomitant]
     Active Substance: GIVOSIRAN
     Indication: Porphyria acute
     Dosage: UNK
     Dates: end: 2025

REACTIONS (5)
  - End stage renal disease [Recovered/Resolved]
  - Nephropathy [Recovered/Resolved]
  - Hypertensive crisis [Recovered/Resolved]
  - Hyperglycaemia [Unknown]
  - Disease progression [Recovered/Resolved]

NARRATIVE: CASE EVENT DATE: 20250101
